FAERS Safety Report 17418974 (Version 8)
Quarter: 2020Q4

REPORT INFORMATION
  Report Type: Spontaneous
  Country: JP (occurrence: JP)
  Receive Date: 20200214
  Receipt Date: 20201228
  Transmission Date: 20210113
  Serious: Yes (Hospitalization)
  Sender: FDA-Public Use
  Company Number: NVSJ2020JP001991

PATIENT
  Age: 34 Year
  Sex: Female

DRUGS (1)
  1. ILARIS [Suspect]
     Active Substance: CANAKINUMAB
     Indication: CRYOPYRIN ASSOCIATED PERIODIC SYNDROME
     Dosage: 150 MG
     Route: 058
     Dates: start: 20190404, end: 20200205

REACTIONS (6)
  - Pneumonia pneumococcal [Recovered/Resolved]
  - Cough [Unknown]
  - Impaired healing [Unknown]
  - Pneumonia influenzal [Recovered/Resolved]
  - Meningism [Unknown]
  - Pyrexia [Unknown]

NARRATIVE: CASE EVENT DATE: 20200205
